FAERS Safety Report 4994273-4 (Version None)
Quarter: 2006Q2

REPORT INFORMATION
  Report Type: 
  Country: None (occurrence: None)
  Receive Date: 20060503
  Receipt Date: 20060420
  Transmission Date: 20061013
  Serious: Yes (Other)
  Sender: FDA-Public Use
  Company Number: 2006054307

PATIENT
  Age: 26 Year
  Sex: Female

DRUGS (2)
  1. DILANTIN [Suspect]
     Indication: EPILEPSY
     Dosage: UNKNOWN
     Route: 065
     Dates: start: 20060201
  2. KEPPRA [Suspect]
     Indication: EPILEPSY
     Dosage: UNKNOWN
     Route: 065
     Dates: start: 20060201

REACTIONS (2)
  - ABORTION SPONTANEOUS [None]
  - DRUG EXPOSURE DURING PREGNANCY [None]
